FAERS Safety Report 5196172-4 (Version None)
Quarter: 2006Q4

REPORT INFORMATION
  Report Type: 
  Country: None (occurrence: None)
  Receive Date: 20061222
  Receipt Date: 20061207
  Transmission Date: 20070319
  Serious: Yes (Death)
  Sender: FDA-Public Use
  Company Number: 150859ISR

PATIENT
  Age: 41 Year
  Sex: Male

DRUGS (1)
  1. CITALOPRAM HYDROBROMIDE [Suspect]
     Indication: ANXIETY
     Dosage: (10 MG)
     Route: 048
     Dates: start: 20061106, end: 20061108

REACTIONS (1)
  - COMPLETED SUICIDE [None]
